FAERS Safety Report 26055774 (Version 1)
Quarter: 2025Q4

REPORT INFORMATION
  Report Type: Other
  Country: EU (occurrence: EU)
  Receive Date: 20251117
  Receipt Date: 20251117
  Transmission Date: 20260117
  Serious: Yes (Hospitalization)
  Sender: NOVITIUM PHARMA
  Company Number: EU-NOVITIUM PHARMA-000260

PATIENT
  Sex: Male

DRUGS (24)
  1. DAPSONE [Suspect]
     Active Substance: DAPSONE
     Indication: Borderline leprosy
  2. PREDNISONE [Suspect]
     Active Substance: PREDNISONE
     Indication: Acute febrile neutrophilic dermatosis
  3. AMOXICILLIN\CLAVULANIC ACID [Concomitant]
     Active Substance: AMOXICILLIN\CLAVULANIC ACID
     Indication: Lymphadenopathy
  4. RIFAMPIN [Concomitant]
     Active Substance: RIFAMPIN
     Indication: Borderline leprosy
  5. CLOFAZIMINE [Concomitant]
     Active Substance: CLOFAZIMINE
     Indication: Borderline leprosy
  6. THALIDOMIDE [Concomitant]
     Active Substance: THALIDOMIDE
     Indication: Type 2 lepra reaction
  7. IBUPROFEN [Concomitant]
     Active Substance: IBUPROFEN
     Indication: Product used for unknown indication
     Dosage: ADJUNCTIVE, STOPPED
  8. METHOTREXATE [Concomitant]
     Active Substance: METHOTREXATE
     Indication: Steroid dependence
  9. APREMILAST [Concomitant]
     Active Substance: APREMILAST
     Indication: Type 2 lepra reaction
  10. CLOFAZIMINE [Concomitant]
     Active Substance: CLOFAZIMINE
     Indication: Leprosy
  11. CLARITHROMYCIN [Concomitant]
     Active Substance: CLARITHROMYCIN
     Indication: Leprosy
  12. MINOCYCLINE [Concomitant]
     Active Substance: MINOCYCLINE HYDROCHLORIDE
     Indication: Leprosy
  13. PREDNISONE [Suspect]
     Active Substance: PREDNISONE
     Indication: Borderline leprosy
  14. APREMILAST [Concomitant]
     Active Substance: APREMILAST
     Indication: Type 2 lepra reaction
     Dosage: DISCONTINUED FOR TWO WEEKS AFTER WITHDRAWAL OF PREDNISONE
  15. THALIDOMIDE [Concomitant]
     Active Substance: THALIDOMIDE
     Indication: Type 2 lepra reaction
  16. THALIDOMIDE [Concomitant]
     Active Substance: THALIDOMIDE
     Indication: Type 2 lepra reaction
     Dosage: GRADUAL TAPERING
  17. THALIDOMIDE [Concomitant]
     Active Substance: THALIDOMIDE
     Indication: Type 2 lepra reaction
     Dosage: WITHDRAWN
  18. PREDNISONE [Suspect]
     Active Substance: PREDNISONE
     Indication: Type 2 lepra reaction
     Dosage: TAPERED BELOW 50MG
  19. PREDNISONE [Suspect]
     Active Substance: PREDNISONE
     Indication: Type 2 lepra reaction
  20. PREDNISONE [Suspect]
     Active Substance: PREDNISONE
     Indication: Type 2 lepra reaction
     Dosage: GRADUAL TAPERING
  21. CLOFAZIMINE [Concomitant]
     Active Substance: CLOFAZIMINE
     Indication: Type 2 lepra reaction
  22. CLARITHROMYCIN [Concomitant]
     Active Substance: CLARITHROMYCIN
     Indication: Type 2 lepra reaction
  23. MINOCYCLINE [Concomitant]
     Active Substance: MINOCYCLINE HYDROCHLORIDE
     Indication: Type 2 lepra reaction
  24. CLOFAZIMINE [Concomitant]
     Active Substance: CLOFAZIMINE
     Indication: Borderline leprosy
     Dosage: DISCONTINUED

REACTIONS (3)
  - Drug resistance [Unknown]
  - Rebound effect [Unknown]
  - Cushingoid [Unknown]
